FAERS Safety Report 4512028-1 (Version None)
Quarter: 2004Q4

REPORT INFORMATION
  Report Type: 
  Country: None (occurrence: None)
  Receive Date: 20041123
  Receipt Date: 20041111
  Transmission Date: 20050328
  Serious: Yes (Hospitalization)
  Sender: FDA-Public Use
  Company Number: 210055

PATIENT
  Age: 55 Year
  Sex: 0

DRUGS (2)
  1. BEVACIZUMAB(BEVACIZUMAB) PWDR + SOLVENT, INFUSION SOLN, 100MG [Suspect]
     Indication: BREAST CANCER METASTATIC
     Dosage: 10 MG/KG, Q2W, INTRAVENOUS
     Route: 042
     Dates: start: 20030429
  2. PACLITAXEL(PACLITAZEL) [Suspect]
     Indication: BREAST CANCER METASTATIC
     Dosage: 90 MG/M2, Q3W, INTRAVENOUS
     Route: 042

REACTIONS (5)
  - ERYTHEMA [None]
  - IMPLANT SITE INFECTION [None]
  - OEDEMA PERIPHERAL [None]
  - PAIN IN EXTREMITY [None]
  - WOUND INFECTION [None]
